FAERS Safety Report 20951330 (Version 1)
Quarter: 2022Q2

REPORT INFORMATION
  Report Type: Spontaneous
  Country: US (occurrence: None)
  Receive Date: 20220610
  Receipt Date: 20220610
  Transmission Date: 20220720
  Serious: Yes (Disabling)
  Sender: FDA-Public Use
  Company Number: None

PATIENT
  Age: 36 Year
  Sex: Female
  Weight: 54 kg

DRUGS (14)
  1. EMGALITY [Suspect]
     Active Substance: GALCANEZUMAB-GNLM
     Indication: Migraine
     Dosage: OTHER QUANTITY : 1 INJECTION(S);?OTHER FREQUENCY : 1X/MONTH;?
     Route: 058
     Dates: start: 20220511, end: 20220511
  2. HYDROXYCHLOROQUINE [Suspect]
     Active Substance: HYDROXYCHLOROQUINE
  3. SULFASALAZINE [Suspect]
     Active Substance: SULFASALAZINE
  4. HYDROXYCHLOROQUINE [Concomitant]
     Active Substance: HYDROXYCHLOROQUINE
  5. ONDANSETRON [Concomitant]
     Active Substance: ONDANSETRON
  6. Disintegrating [Concomitant]
  7. SULFASALAZINE [Concomitant]
     Active Substance: SULFASALAZINE
  8. CELECOXIB [Concomitant]
     Active Substance: CELECOXIB
  9. VITAMINS [Concomitant]
     Active Substance: VITAMINS
  10. TYLENOL [Concomitant]
     Active Substance: ACETAMINOPHEN
  11. Glucosamine HCl Powder [Concomitant]
  12. BIOTIN [Concomitant]
     Active Substance: BIOTIN
  13. DIALYVITE [Concomitant]
     Active Substance: ASCORBIC ACID\BIOTIN\CALCIUM PANTOTHENATE\COBALAMIN\FOLIC ACID\NIACINAMIDE\PYRIDOXINE HYDROCHLORIDE\
  14. Vitamin D [Concomitant]

REACTIONS (4)
  - Migraine [None]
  - Condition aggravated [None]
  - Peripheral sensory neuropathy [None]
  - Autonomic neuropathy [None]

NARRATIVE: CASE EVENT DATE: 20220511
